FAERS Safety Report 12081429 (Version 7)
Quarter: 2016Q3

REPORT INFORMATION
  Report Type: Report from Study
  Country: CA (occurrence: CA)
  Receive Date: 20160216
  Receipt Date: 20160710
  Transmission Date: 20161109
  Serious: Yes (Hospitalization, Other)
  Sender: FDA-Public Use
  Company Number: PHHY2014CA081779

PATIENT
  Age: 59 Year
  Sex: Female

DRUGS (4)
  1. SANDOSTATIN [Suspect]
     Active Substance: OCTREOTIDE ACETATE
     Indication: INSULINOMA
     Dosage: 150 UG, BID
     Route: 058
     Dates: end: 2014
  2. SANDOSTATIN LAR DEPOT [Suspect]
     Active Substance: OCTREOTIDE ACETATE
     Dosage: 30 MG, QMO
     Route: 030
  3. SANDOSTATIN LAR DEPOT [Suspect]
     Active Substance: OCTREOTIDE ACETATE
     Dosage: 50 MG, QMO
     Route: 030
  4. SANDOSTATIN LAR DEPOT [Suspect]
     Active Substance: OCTREOTIDE ACETATE
     Indication: INSULINOMA
     Dosage: 20 MG, QMO
     Route: 030
     Dates: start: 20140627

REACTIONS (17)
  - Blood pressure decreased [Unknown]
  - Injection site pain [Unknown]
  - Hypoglycaemia [Unknown]
  - Blood pressure diastolic decreased [Unknown]
  - Dermatitis allergic [Unknown]
  - Mania [Unknown]
  - Cough [Recovered/Resolved]
  - Dizziness [Unknown]
  - Sleep disorder [Unknown]
  - General physical health deterioration [Unknown]
  - Pruritus [Not Recovered/Not Resolved]
  - Asthenia [Unknown]
  - Foot fracture [Unknown]
  - Skin burning sensation [Unknown]
  - Heart rate decreased [Unknown]
  - Rash erythematous [Not Recovered/Not Resolved]
  - Weight decreased [Unknown]

NARRATIVE: CASE EVENT DATE: 2014
